FAERS Safety Report 10527634 (Version 1)
Quarter: 2014Q4

REPORT INFORMATION
  Report Type: Spontaneous
  Country: US (occurrence: None)
  Receive Date: 20141017
  Receipt Date: 20141017
  Transmission Date: 20150528
  Serious: Yes (Hospitalization)
  Sender: FDA-Public Use
  Company Number: None

PATIENT
  Age: 78 Year
  Sex: Male
  Weight: 78.5 kg

DRUGS (2)
  1. DEXTROSE/HEPARIN [Suspect]
     Active Substance: DEXTROSE\HEPARIN
     Indication: INTERMITTENT CLAUDICATION
     Dosage: 25000 UNITS SLIDING SCALE IV
     Route: 042
     Dates: start: 20140717, end: 20140718
  2. ASPIRIN. [Suspect]
     Active Substance: ASPIRIN
     Indication: THROMBOSIS PROPHYLAXIS
     Dosage: 81 MG EVERY DAY PO
     Route: 048
     Dates: start: 20140717, end: 20140718

REACTIONS (6)
  - Tachycardia [None]
  - Procedural hypotension [None]
  - Abdominal pain [None]
  - Anaemia postoperative [None]
  - Post procedural haematoma [None]
  - Retroperitoneal haematoma [None]

NARRATIVE: CASE EVENT DATE: 20140718
